FAERS Safety Report 11517971 (Version 1)
Quarter: 2015Q3

REPORT INFORMATION
  Report Type: Spontaneous
  Country: US (occurrence: US)
  Receive Date: 20150917
  Receipt Date: 20150917
  Transmission Date: 20151125
  Serious: No
  Sender: FDA-Public Use
  Company Number: US-RB-078789-15

PATIENT

DRUGS (1)
  1. MUCINEX MAXIMUM STRENGTH [Suspect]
     Active Substance: GUAIFENESIN
     Indication: PRODUCTIVE COUGH
     Dosage: . AMOUNT USED 1 AND 1/2 TABLETS.,FREQUENCY UNK
     Route: 065

REACTIONS (3)
  - Incorrect drug administration duration [Unknown]
  - Diarrhoea [Recovering/Resolving]
  - Incorrect dose administered [Unknown]
